FAERS Safety Report 12522735 (Version 1)
Quarter: 2016Q3

REPORT INFORMATION
  Report Type: Report from Study
  Country: US (occurrence: US)
  Receive Date: 20160701
  Receipt Date: 20160701
  Transmission Date: 20161109
  Serious: Yes (Hospitalization, Other)
  Sender: FDA-Public Use
  Company Number: US-ABBVIE-16K-163-1652651-00

PATIENT
  Age: 37 Year
  Sex: Female

DRUGS (1)
  1. HUMIRA [Suspect]
     Active Substance: ADALIMUMAB
     Indication: PSORIATIC ARTHROPATHY
     Route: 058
     Dates: start: 201204, end: 201605

REACTIONS (4)
  - Cellulitis [Recovered/Resolved]
  - Osteoarthritis [Unknown]
  - Skin ulcer [Recovered/Resolved]
  - Staphylococcal osteomyelitis [Recovering/Resolving]

NARRATIVE: CASE EVENT DATE: 201605
